FAERS Safety Report 13300953 (Version 1)
Quarter: 2017Q1

REPORT INFORMATION
  Report Type: Spontaneous
  Country: US (occurrence: US)
  Receive Date: 20170306
  Receipt Date: 20170306
  Transmission Date: 20170428
  Serious: Yes (Other)
  Sender: FDA-Public Use
  Company Number: None

PATIENT
  Age: 80 Year
  Sex: Male
  Weight: 58.5 kg

DRUGS (13)
  1. RENVELA [Concomitant]
     Active Substance: SEVELAMER CARBONATE
  2. FOLIC ACID. [Concomitant]
     Active Substance: FOLIC ACID
  3. OSTEO-BIOFLEX [Concomitant]
  4. LACTULOSE 10GM/15ML SOLUTION [Suspect]
     Active Substance: LACTULOSE
     Indication: CONSTIPATION
     Dosage: 48 OUNCE(S) 3 TIMES A DAY ORAL
     Route: 048
     Dates: start: 20170215, end: 20170215
  5. GABAPENTIN. [Concomitant]
     Active Substance: GABAPENTIN
  6. VITAMIN B COMPLEX [Concomitant]
     Active Substance: CYANOCOBALAMIN\DEXPANTHENOL\NIACINAMIDE\PYRIDOXINE HYDROCHLORIDE\RIBOFLAVIN 5^-PHOSPHATE SODIUM\THIAMINE HYDROCHLORIDE\VITAMIN B COMPLEX
  7. DIALYSIS [Concomitant]
     Active Substance: UNSPECIFIED INGREDIENT
  8. LORATADINE. [Concomitant]
     Active Substance: LORATADINE
  9. SENSIPAR [Concomitant]
     Active Substance: CINACALCET HYDROCHLORIDE
  10. OMEPRAZOLE. [Concomitant]
     Active Substance: OMEPRAZOLE
  11. DILTIAZEM. [Concomitant]
     Active Substance: DILTIAZEM
  12. ATORVASTATIN [Concomitant]
     Active Substance: ATORVASTATIN
  13. PROBIOTIC [Concomitant]
     Active Substance: PROBIOTICS NOS

REACTIONS (2)
  - Abdominal pain [None]
  - Diarrhoea [None]

NARRATIVE: CASE EVENT DATE: 20170215
